FAERS Safety Report 7488164-7 (Version None)
Quarter: 2011Q2

REPORT INFORMATION
  Report Type: 
  Country: None (occurrence: None)
  Receive Date: 20110518
  Receipt Date: 20110514
  Transmission Date: 20111010
  Serious: Yes (Death)
  Sender: FDA-Public Use
  Company Number: SA-ROCHE-777172

PATIENT
  Age: 64 Year
  Sex: Male
  Weight: 105 kg

DRUGS (2)
  1. PEGASYS [Suspect]
     Indication: HEPATITIS B
     Route: 058
     Dates: start: 20110505
  2. ENTECAVIR [Concomitant]
     Indication: HEPATITIS B
     Dosage: DRUG REPORTED: ENTICAVIR ORAL
     Dates: start: 20110201

REACTIONS (1)
  - DEATH [None]
